FAERS Safety Report 12917434 (Version 4)
Quarter: 2018Q2

REPORT INFORMATION
  Report Type: Spontaneous
  Country: JP (occurrence: JP)
  Receive Date: 20161107
  Receipt Date: 20180501
  Transmission Date: 20180711
  Serious: Yes (Hospitalization, Other)
  Sender: FDA-Public Use
  Company Number: JP-ROCHE-1851339

PATIENT
  Age: 54 Year
  Sex: Male
  Weight: 72 kg

DRUGS (7)
  1. SALAZOSULFAPYRIDINE [Concomitant]
     Active Substance: SULFASALAZINE
     Indication: RHEUMATOID ARTHRITIS
     Dosage: THE FRACTIONATION DOSE FREQUENCY IS UNCERTAIN. ?DOSE INTERVAL UNCERTAINTY
     Route: 065
  2. LANSOPRAZOLE. [Concomitant]
     Active Substance: LANSOPRAZOLE
     Indication: PROPHYLAXIS
     Dosage: DOSAGE IS UNCERTAIN.
     Route: 048
  3. CALONAL [Concomitant]
     Active Substance: ACETAMINOPHEN
     Indication: RHEUMATOID ARTHRITIS
     Dosage: DOSAGE IS UNCERTAIN.
     Route: 048
  4. NEUROTROPIN (JAPAN) [Concomitant]
     Indication: RHEUMATOID ARTHRITIS
     Dosage: DOSAGE IS UNCERTAIN.
     Route: 048
  5. MYSLEE [Concomitant]
     Active Substance: ZOLPIDEM TARTRATE
     Dosage: DOSAGE IS UNCERTAIN.
     Route: 048
  6. ACTEMRA [Suspect]
     Active Substance: TOCILIZUMAB
     Indication: RHEUMATOID ARTHRITIS
     Route: 041
     Dates: start: 20141021, end: 20160930
  7. METHOTREXATE. [Concomitant]
     Active Substance: METHOTREXATE
     Indication: LIVER DISORDER
     Dosage: THE FRACTIONATION DOSE FREQUENCY IS UNCERTAIN. ?DOSE INTERVAL UNCERTAINTY
     Route: 065
     Dates: end: 201602

REACTIONS (7)
  - Cholelithiasis [Unknown]
  - Knee deformity [Unknown]
  - Gait disturbance [Unknown]
  - Cerebral haemorrhage [Recovered/Resolved with Sequelae]
  - Biliary colic [Unknown]
  - Cholecystitis [Unknown]
  - Liver disorder [Unknown]

NARRATIVE: CASE EVENT DATE: 20161023
